FAERS Safety Report 8899562 (Version 1)
Quarter: 2012Q4

REPORT INFORMATION
  Report Type: Report from Study
  Country: BR (occurrence: BR)
  Receive Date: 20121109
  Receipt Date: 20121109
  Transmission Date: 20130627
  Serious: Yes (Other)
  Sender: FDA-Public Use
  Company Number: BR-PFIZER INC-2012278503

PATIENT
  Age: 72 Year
  Sex: Female
  Weight: 58 kg

DRUGS (5)
  1. LIPITOR [Suspect]
     Indication: HIGH CHOLESTEROL
     Dosage: 40 mg (half tablet of 80mg), daily
     Route: 048
     Dates: start: 20071107, end: 200712
  2. LIPITOR [Suspect]
     Dosage: 20 mg (one quarter of the tablet of 80mg), daily
     Route: 048
     Dates: start: 200712
  3. LIPITOR [Suspect]
     Dosage: UNK
     Route: 048
     Dates: start: 2008
  4. LIPITOR [Suspect]
     Dosage: 20 mg (one quarter of the tablet of 80mg), daily
     Route: 048
  5. VITALUX PLUS [Concomitant]
     Indication: MACULAR DEGENERATION (SENILE) OF RETINA, UNSPECIFIED
     Dosage: UNK
     Dates: start: 2007, end: 20121031

REACTIONS (1)
  - Diabetes mellitus [Unknown]
